FAERS Safety Report 11923970 (Version 1)
Quarter: 2016Q1

REPORT INFORMATION
  Report Type: Spontaneous
  Country: GB (occurrence: GB)
  Receive Date: 20160118
  Receipt Date: 20160118
  Transmission Date: 20160526
  Serious: Yes (Other)
  Sender: FDA-Public Use
  Company Number: GB-TARO PHARMACEUTICALS UK LTD-2016SUN00013

PATIENT
  Age: 75 Year
  Sex: Female

DRUGS (2)
  1. WARFARIN [Suspect]
     Active Substance: WARFARIN
     Indication: DEEP VEIN THROMBOSIS
     Dosage: UNK
     Route: 065
  2. CALCIMIMETIC CINACALCET [Concomitant]
     Indication: HYPERPARATHYROIDISM
     Dosage: 180 MG, QD

REACTIONS (1)
  - Calciphylaxis [Recovered/Resolved]
